FAERS Safety Report 25623299 (Version 1)
Quarter: 2025Q3

REPORT INFORMATION
  Report Type: Spontaneous
  Country: EU (occurrence: EU)
  Receive Date: 20250730
  Receipt Date: 20250730
  Transmission Date: 20251020
  Serious: Yes (Hospitalization)
  Sender: MYLAN
  Company Number: None

PATIENT
  Age: 55 Year
  Sex: Male
  Weight: 80 kg

DRUGS (8)
  1. GABAPENTIN [Suspect]
     Active Substance: GABAPENTIN
     Indication: Back pain
     Dosage: 1200 MILLIGRAM, BID (1200 MILLIGRAM, EVERY 12 HOURS)
     Dates: start: 20250525, end: 20250527
  2. GABAPENTIN [Suspect]
     Active Substance: GABAPENTIN
     Dosage: 1200 MILLIGRAM, BID (1200 MILLIGRAM, EVERY 12 HOURS)
     Route: 048
     Dates: start: 20250525, end: 20250527
  3. GABAPENTIN [Suspect]
     Active Substance: GABAPENTIN
     Dosage: 1200 MILLIGRAM, BID (1200 MILLIGRAM, EVERY 12 HOURS)
     Route: 048
     Dates: start: 20250525, end: 20250527
  4. GABAPENTIN [Suspect]
     Active Substance: GABAPENTIN
     Dosage: 1200 MILLIGRAM, BID (1200 MILLIGRAM, EVERY 12 HOURS)
     Dates: start: 20250525, end: 20250527
  5. ZALDIAR [Suspect]
     Active Substance: ACETAMINOPHEN\TRAMADOL HYDROCHLORIDE
     Indication: Back pain
     Dosage: 1 DOSAGE FORM, Q8H (1 TABLET EVERY 8 HOURS), 20 TABLETS
     Dates: start: 20250525, end: 20250527
  6. ZALDIAR [Suspect]
     Active Substance: ACETAMINOPHEN\TRAMADOL HYDROCHLORIDE
     Dosage: 1 DOSAGE FORM, Q8H (1 TABLET EVERY 8 HOURS), 20 TABLETS
     Route: 048
     Dates: start: 20250525, end: 20250527
  7. ZALDIAR [Suspect]
     Active Substance: ACETAMINOPHEN\TRAMADOL HYDROCHLORIDE
     Dosage: 1 DOSAGE FORM, Q8H (1 TABLET EVERY 8 HOURS), 20 TABLETS
     Route: 048
     Dates: start: 20250525, end: 20250527
  8. ZALDIAR [Suspect]
     Active Substance: ACETAMINOPHEN\TRAMADOL HYDROCHLORIDE
     Dosage: 1 DOSAGE FORM, Q8H (1 TABLET EVERY 8 HOURS), 20 TABLETS
     Dates: start: 20250525, end: 20250527

REACTIONS (2)
  - Choreoathetosis [Recovering/Resolving]
  - Gait disturbance [Recovering/Resolving]

NARRATIVE: CASE EVENT DATE: 20250527
